FAERS Safety Report 24066007 (Version 1)
Quarter: 2024Q3

REPORT INFORMATION
  Report Type: Spontaneous
  Country: US (occurrence: None)
  Receive Date: 20240708
  Receipt Date: 20240708
  Transmission Date: 20241016
  Serious: Yes (Disabling, Other)
  Sender: Public
  Company Number: None

PATIENT
  Age: 82 Year
  Sex: Female

DRUGS (1)
  1. NAMENDA [Suspect]
     Active Substance: MEMANTINE HYDROCHLORIDE
     Indication: Preoperative care
     Dosage: FREQUENCY : DAILY;?
     Dates: start: 20240625, end: 20240627

REACTIONS (9)
  - Dizziness [None]
  - Peripheral swelling [None]
  - Peripheral swelling [None]
  - Headache [None]
  - Anxiety [None]
  - Depression [None]
  - Eye disorder [None]
  - Eyelid ptosis [None]
  - Therapy cessation [None]

NARRATIVE: CASE EVENT DATE: 20240627
